FAERS Safety Report 7272073-2 (Version None)
Quarter: 2011Q1

REPORT INFORMATION
  Report Type: 
  Country: None (occurrence: None)
  Receive Date: 20110203
  Receipt Date: 20110126
  Transmission Date: 20110831
  Serious: Yes (Other)
  Sender: FDA-Public Use
  Company Number: US-NOVOPROD-322012

PATIENT
  Sex: Male
  Weight: 126.98 kg

DRUGS (6)
  1. APIDRA [Concomitant]
     Indication: TYPE 2 DIABETES MELLITUS
     Dosage: 40 U, TID WITH MEALS
  2. ALTACE [Concomitant]
     Indication: HYPERTENSION
     Dosage: 10 MG, QD
     Route: 048
  3. LEVEMIR [Suspect]
     Indication: TYPE 2 DIABETES MELLITUS
     Dosage: 50 IU, QD
     Route: 058
     Dates: start: 20101215, end: 20110102
  4. METFORMIN HCL [Concomitant]
     Indication: TYPE 2 DIABETES MELLITUS
     Dosage: 500 MG, BID
     Route: 048
  5. ACTOS [Concomitant]
     Indication: TYPE 2 DIABETES MELLITUS
     Dosage: 45 MG, QD
     Route: 048
  6. LEVEMIR [Suspect]
     Dosage: UNK
     Route: 058
     Dates: start: 20110108, end: 20110111

REACTIONS (3)
  - HEART RATE IRREGULAR [None]
  - HEART RATE INCREASED [None]
  - HYPERSENSITIVITY [None]
